FAERS Safety Report 6991270-4 (Version None)
Quarter: 2010Q3

REPORT INFORMATION
  Report Type: 
  Country: None (occurrence: None)
  Receive Date: 20100916
  Receipt Date: 20081016
  Transmission Date: 20110219
  Serious: No
  Sender: FDA-Public Use
  Company Number: US-WYE-H06451608

PATIENT
  Age: 54 Year
  Sex: Female

DRUGS (2)
  1. PREMARIN [Suspect]
     Indication: OESTROGEN REPLACEMENT THERAPY
     Dosage: 0.625 MG DAILY
     Route: 048
     Dates: start: 19990801
  2. PREMARIN [Suspect]
     Indication: HYSTERECTOMY

REACTIONS (1)
  - WHITE BLOOD CELL COUNT DECREASED [None]
